FAERS Safety Report 24890132 (Version 1)
Quarter: 2025Q1

REPORT INFORMATION
  Report Type: Spontaneous
  Country: FR (occurrence: FR)
  Receive Date: 20250127
  Receipt Date: 20250127
  Transmission Date: 20250409
  Serious: Yes (Hospitalization, Other)
  Sender: MERCK
  Company Number: FR-009507513-2501FRA008705

PATIENT
  Age: 48 Year
  Sex: Female

DRUGS (4)
  1. PEMBROLIZUMAB [Suspect]
     Active Substance: PEMBROLIZUMAB
     Indication: Non-small cell lung cancer stage IV
     Dates: start: 202012, end: 202102
  2. CISPLATIN [Suspect]
     Active Substance: CISPLATIN
     Indication: Non-small cell lung cancer stage IV
     Dates: start: 202012, end: 202102
  3. PEMETREXED [Suspect]
     Active Substance: PEMETREXED
     Indication: Non-small cell lung cancer stage IV
     Dates: start: 202012, end: 202102
  4. PEMETREXED [Suspect]
     Active Substance: PEMETREXED
     Dates: start: 202109

REACTIONS (1)
  - Intestinal pseudo-obstruction [Not Recovered/Not Resolved]

NARRATIVE: CASE EVENT DATE: 20201201
